FAERS Safety Report 6769628-8 (Version None)
Quarter: 2010Q2

REPORT INFORMATION
  Report Type: 
  Country: None (occurrence: None)
  Receive Date: 20100610
  Receipt Date: 20100602
  Transmission Date: 20101027
  Serious: Yes (Hospitalization)
  Sender: FDA-Public Use
  Company Number: 2010SP030719

PATIENT
  Age: 39 Year
  Sex: Female

DRUGS (6)
  1. PUREGON (FOLLITROPIN BETA /01348901/) [Suspect]
     Indication: OVULATION INDUCTION
     Dosage: 100 IU;QD;  80 IU;QD; 50 IU;QOD
     Dates: start: 20100504, end: 20100512
  2. PUREGON (FOLLITROPIN BETA /01348901/) [Suspect]
     Indication: OVULATION INDUCTION
     Dosage: 100 IU;QD;  80 IU;QD; 50 IU;QOD
     Dates: start: 20080101
  3. PUREGON (FOLLITROPIN BETA /01348901/) [Suspect]
     Indication: OVULATION INDUCTION
     Dosage: 100 IU;QD;  80 IU;QD; 50 IU;QOD
     Dates: start: 20080101
  4. PREGNYL [Suspect]
     Indication: OVULATION INDUCTION
     Dosage: 5000 IU;ONCE
     Dates: start: 20080101
  5. PREGNYL [Suspect]
     Indication: OVULATION INDUCTION
     Dosage: 5000 IU;ONCE
     Dates: start: 20100512
  6. GLUCOPHAGE [Concomitant]

REACTIONS (3)
  - ABDOMINAL DISTENSION [None]
  - DISCOMFORT [None]
  - URINARY RETENTION [None]
